FAERS Safety Report 11391211 (Version 2)
Quarter: 2015Q3

REPORT INFORMATION
  Report Type: Report from Study
  Country: US (occurrence: US)
  Receive Date: 20150818
  Receipt Date: 20150901
  Transmission Date: 20151125
  Serious: Yes (Hospitalization)
  Sender: FDA-Public Use
  Company Number: US-BAYER-2015-398489

PATIENT
  Age: 22 Year
  Sex: Female
  Weight: 90 kg

DRUGS (15)
  1. HALOPERIDOL. [Concomitant]
     Active Substance: HALOPERIDOL
     Route: 048
  2. LORAZEPAM. [Concomitant]
     Active Substance: LORAZEPAM
     Route: 048
  3. ONDANSETRON [Concomitant]
     Active Substance: ONDANSETRON
     Route: 048
  4. OXYCODONE [Concomitant]
     Active Substance: OXYCODONE
     Route: 048
  5. PROCHLORPERAZINE. [Concomitant]
     Active Substance: PROCHLORPERAZINE
     Route: 048
  6. FOSAPREPITANT [Concomitant]
     Active Substance: FOSAPREPITANT
     Dosage: 150 MG
  7. SENNA S [DOCUSATE SODIUM,SENNOSIDE A+B] [Concomitant]
     Dosage: 8 . 6- 50 MG
     Route: 048
  8. DEXAMETHASON [DEXAMETHASONE] [Concomitant]
     Dosage: 12 MG
  9. POLYETHYLENE GLYCOL [Concomitant]
     Active Substance: POLYETHYLENE GLYCOLS
     Dosage: 17 G/DOSE
     Route: 048
  10. EPIRUBICIN [Suspect]
     Active Substance: EPIRUBICIN
     Indication: SYNOVIAL SARCOMA
     Dosage: 30 MG/M2 D1-3, Q3W
     Route: 042
     Dates: start: 20150219, end: 20150729
  11. IFOSFAMIDE. [Suspect]
     Active Substance: IFOSFAMIDE
     Indication: SYNOVIAL SARCOMA
     Dosage: 2.5 MG/M2 D1-3, Q3W
     Route: 042
  12. ATIVAN [Concomitant]
     Active Substance: LORAZEPAM
     Dosage: 0.5 MG
  13. SORAFENIB (RAF KINASE INHIBITOR) [Suspect]
     Active Substance: SORAFENIB
     Indication: SYNOVIAL SARCOMA
     Dosage: 200 MG, QD
     Route: 048
     Dates: start: 20150128, end: 20150819
  14. OLANZAPINE. [Concomitant]
     Active Substance: OLANZAPINE
     Route: 048
  15. ZOFRAN [Concomitant]
     Active Substance: ONDANSETRON HYDROCHLORIDE
     Dosage: 24 MG

REACTIONS (5)
  - Anal abscess [None]
  - Nausea [None]
  - Vomiting [None]
  - Febrile neutropenia [None]
  - Soft tissue infection [None]

NARRATIVE: CASE EVENT DATE: 20150702
